FAERS Safety Report 8309912 (Version 5)
Quarter: 2013Q1

REPORT INFORMATION
  Report Type: Spontaneous
  Country: JP (occurrence: JP)
  Receive Date: 20111223
  Receipt Date: 20130107
  Transmission Date: 20140127
  Serious: Yes (Other)
  Sender: FDA-Public Use
  Company Number: JP-JNJFOC-20111208457

PATIENT
  Age: 75 Year
  Sex: Male

DRUGS (3)
  1. RISPERDAL [Suspect]
     Indication: SCHIZOPHRENIA
     Route: 048
     Dates: start: 20070202, end: 20070205
  2. HALOPERIDOL [Suspect]
     Indication: SCHIZOPHRENIA
     Route: 065
  3. PHENYLEPHRINE HYDROCHLORIDE [Concomitant]
     Indication: MYDRIASIS
     Route: 047

REACTIONS (2)
  - Floppy iris syndrome [Recovered/Resolved]
  - Treatment noncompliance [Unknown]
